FAERS Safety Report 17648594 (Version 1)
Quarter: 2020Q2

REPORT INFORMATION
  Report Type: Spontaneous
  Country: US (occurrence: US)
  Receive Date: 20200408
  Receipt Date: 20200408
  Transmission Date: 20200713
  Serious: No
  Sender: FDA-Public Use
  Company Number: US-XERIS PHARMACEUTICALS-2020XER00001

PATIENT
  Age: 68 Year
  Sex: Female
  Weight: 72.11 kg

DRUGS (11)
  1. GVOKE [Suspect]
     Active Substance: GLUCAGON
     Indication: BLOOD GLUCOSE DECREASED
     Dosage: 1 DOSAGE UNITS, ONCE
     Dates: start: 20200106, end: 20200106
  2. LISINOPRIL. [Concomitant]
     Active Substance: LISINOPRIL
     Dosage: 40 MG, 1X/DAY
  3. AMBIEN [Concomitant]
     Active Substance: ZOLPIDEM TARTRATE
  4. NOVOLOG [Concomitant]
     Active Substance: INSULIN ASPART
     Dosage: UNK, 3X/DAY BEFORE MEALS, BASED ON BLOOD SUGAR, AFTERNOON DOSE 8 UNITS
     Dates: end: 202001
  5. NOVOLOG [Concomitant]
     Active Substance: INSULIN ASPART
     Dosage: UNK, 3X/DAY BEFORE MEALS, BASED IN BLOOD SUGAR, AFTERNOON DOSE 6 UNITS
     Dates: start: 202001
  6. CITALOPRAM [Concomitant]
     Active Substance: CITALOPRAM HYDROBROMIDE
     Dosage: 40 MG, 1X/DAY
  7. PROPRANOLOL [Concomitant]
     Active Substance: PROPRANOLOL HYDROCHLORIDE
  8. AMLODIPINE [Concomitant]
     Active Substance: AMLODIPINE BESYLATE
     Dosage: 5 MG, 1X/DAY IN THE EVENING
  9. LANTUS [Concomitant]
     Active Substance: INSULIN GLARGINE
     Dosage: 20 U
  10. ASPIRIN. [Concomitant]
     Active Substance: ASPIRIN
     Dosage: UNK
  11. ATIVAN [Concomitant]
     Active Substance: LORAZEPAM
     Dosage: 1-2 TABLETS, 1X/DAY EVERY EVENING

REACTIONS (1)
  - Fatigue [Recovered/Resolved]

NARRATIVE: CASE EVENT DATE: 20200106
